FAERS Safety Report 11992389 (Version 1)
Quarter: 2016Q1

REPORT INFORMATION
  Report Type: Spontaneous
  Country: US (occurrence: None)
  Receive Date: 20160202
  Receipt Date: 20160202
  Transmission Date: 20160526
  Serious: Yes (Hospitalization, Disabling)
  Sender: FDA-Public Use
  Company Number: None

PATIENT
  Age: 61 Year
  Sex: Female
  Weight: 79.38 kg

DRUGS (11)
  1. TYLENOL [Concomitant]
     Active Substance: ACETAMINOPHEN
  2. CALCIUM CARBONATE. [Concomitant]
     Active Substance: CALCIUM CARBONATE
  3. BONIVA [Suspect]
     Active Substance: IBANDRONATE SODIUM
     Indication: OSTEOPOROSIS
     Dosage: 1 PILL MONTHLY TAKEN BY MOUTH ~3 YEARS
     Route: 048
  4. GABAPENTIN. [Concomitant]
     Active Substance: GABAPENTIN
  5. VITAMIN D3 [Concomitant]
     Active Substance: CHOLECALCIFEROL
  6. FOSAMAX [Suspect]
     Active Substance: ALENDRONATE SODIUM
     Indication: OSTEOPENIA
     Dosage: 1 PILL WEEKLY TAKEN BY MOUTH ~10 YEARS
     Route: 048
  7. ST JOHN^S WORT [Concomitant]
     Active Substance: ST. JOHN^S WORT
  8. FOSAMAX [Suspect]
     Active Substance: ALENDRONATE SODIUM
     Indication: OSTEOPOROSIS
     Dosage: 1 PILL WEEKLY TAKEN BY MOUTH ~10 YEARS
     Route: 048
  9. TRAMADOL. [Concomitant]
     Active Substance: TRAMADOL
  10. PREVACID [Concomitant]
     Active Substance: LANSOPRAZOLE
  11. BIOTIN [Concomitant]
     Active Substance: BIOTIN

REACTIONS (3)
  - Ligament sprain [None]
  - Pain in extremity [None]
  - Joint crepitation [None]

NARRATIVE: CASE EVENT DATE: 20090710
